FAERS Safety Report 4977037-7 (Version None)
Quarter: 2006Q2

REPORT INFORMATION
  Report Type: 
  Country: None (occurrence: None)
  Receive Date: 20060419
  Receipt Date: 20060413
  Transmission Date: 20061013
  Serious: Yes (Death)
  Sender: FDA-Public Use
  Company Number: JP-NOVOPROD-252462

PATIENT
  Age: 69 Year
  Sex: Male

DRUGS (9)
  1. NOVOSEVEN [Suspect]
     Indication: ACQUIRED HAEMOPHILIA
     Dosage: 7.2 MG, QD
     Route: 042
     Dates: start: 20060412, end: 20060412
  2. LEVODOPA [Concomitant]
     Dosage: 3000 MG, QD
     Dates: start: 20060412, end: 20060412
  3. MEYLON [Concomitant]
     Dosage: 750 ML, QD
     Route: 042
     Dates: start: 20060412, end: 20060412
  4. CALCICOL [Concomitant]
     Dosage: 1 VIAL
     Route: 042
     Dates: start: 20060412, end: 20060412
  5. ATROPINE SULFATE [Concomitant]
     Dosage: 3 VIALS
     Route: 042
     Dates: start: 20060412, end: 20060412
  6. BOSMIN [Concomitant]
     Dosage: 8 VIALS
     Route: 042
     Dates: start: 20060412, end: 20060412
  7. NORADRENALINE [Concomitant]
     Dosage: 2 VIALS
     Route: 042
     Dates: start: 20060412, end: 20060412
  8. PROTERNOL [Concomitant]
     Dosage: 4 VIALS
     Route: 042
     Dates: start: 20060412, end: 20060412
  9. RED BLOOD CELLS [Concomitant]
     Dosage: 10 IU, UNK
     Route: 042

REACTIONS (2)
  - CARDIO-RESPIRATORY ARREST [None]
  - SHOCK HAEMORRHAGIC [None]
